FAERS Safety Report 5698794-0 (Version None)
Quarter: 2008Q2

REPORT INFORMATION
  Report Type: 
  Country: None (occurrence: None)
  Receive Date: 20080404
  Receipt Date: 20080325
  Transmission Date: 20081010
  Serious: Yes (Hospitalization, Other)
  Sender: FDA-Public Use
  Company Number: VISP-NO-0803S-0164

PATIENT
  Sex: Female

DRUGS (2)
  1. VISIPAQUE [Suspect]
     Indication: DRUG USE FOR UNKNOWN INDICATION
     Dosage: SINGLE DOSE
  2. VISIPAQUE [Suspect]

REACTIONS (4)
  - AGGRESSION [None]
  - GENERALISED ERYTHEMA [None]
  - HYPERSENSITIVITY [None]
  - RESTLESSNESS [None]
